FAERS Safety Report 9940513 (Version 3)
Quarter: 2014Q2

REPORT INFORMATION
  Report Type: Spontaneous
  Country: US (occurrence: US)
  Receive Date: 20140303
  Receipt Date: 20140411
  Transmission Date: 20141212
  Serious: Yes (Hospitalization, Other)
  Sender: FDA-Public Use
  Company Number: PHEH2014US003674

PATIENT
  Sex: Female

DRUGS (7)
  1. SANDIMMUNE [Suspect]
     Dosage: 100MG A DAY, TWO IN THE MORNING AND TWO AT NIGHT
  2. SANDIMMUNE [Suspect]
     Dosage: VERY LOW DOSE
  3. ZORTRESS [Suspect]
     Dosage: UNK
  4. XANAX [Concomitant]
     Dosage: UKN
  5. MAGNESIUM [Concomitant]
     Dosage: UKN
  6. VITAMIN D [Concomitant]
     Dosage: UKN
  7. ACIDOPHILUS [Concomitant]
     Dosage: UKN

REACTIONS (9)
  - White blood cell count decreased [Unknown]
  - Gastrointestinal disorder [Unknown]
  - Constipation [Unknown]
  - Decreased appetite [Unknown]
  - Nausea [Unknown]
  - Product odour abnormal [Unknown]
  - Malaise [Unknown]
  - Weight decreased [Unknown]
  - Nasopharyngitis [Unknown]
